FAERS Safety Report 14681024 (Version 3)
Quarter: 2018Q3

REPORT INFORMATION
  Report Type: Spontaneous
  Country: US (occurrence: US)
  Receive Date: 20180326
  Receipt Date: 20180802
  Transmission Date: 20181010
  Serious: Yes (Death, Hospitalization, Other)
  Sender: FDA-Public Use
  Company Number: US-009507513-1803USA010624

PATIENT
  Age: 60 Year
  Sex: Male
  Weight: 77.1 kg

DRUGS (10)
  1. QVAR [Concomitant]
     Active Substance: BECLOMETHASONE DIPROPIONATE
  2. COZAAR [Concomitant]
     Active Substance: LOSARTAN POTASSIUM
  3. CODEINE (+) GUAIFENESIN [Concomitant]
     Dosage: 10?100 M
  4. INTRON A [Suspect]
     Active Substance: INTERFERON ALFA-2B
     Indication: HEPATIC CANCER
     Dosage: 0.05 ML, 3 TIMES WEEKLY
     Route: 023
     Dates: start: 20180301, end: 201806
  5. ZOLPIDEM TARTRATE. [Concomitant]
     Active Substance: ZOLPIDEM TARTRATE
  6. ENTECAVIR. [Concomitant]
     Active Substance: ENTECAVIR
  7. POTASSIUM (UNSPECIFIED) [Concomitant]
     Active Substance: POTASSIUM
  8. NEXAVAR [Suspect]
     Active Substance: SORAFENIB
     Dosage: UNK
     Dates: end: 20180517
  9. AMLODIPINE BESYLATE. [Concomitant]
     Active Substance: AMLODIPINE BESYLATE
  10. TRIAMTERENE. [Concomitant]
     Active Substance: TRIAMTERENE

REACTIONS (4)
  - Hepatic cancer metastatic [Fatal]
  - Tumour pain [Recovering/Resolving]
  - Insomnia [Unknown]
  - Gait disturbance [Recovering/Resolving]

NARRATIVE: CASE EVENT DATE: 2018
